FAERS Safety Report 23129740 (Version 1)
Quarter: 2023Q4

REPORT INFORMATION
  Report Type: Spontaneous
  Country: US (occurrence: US)
  Receive Date: 20231031
  Receipt Date: 20231031
  Transmission Date: 20240109
  Serious: Yes (Other)
  Sender: FDA-Public Use
  Company Number: US-MLMSERVICE-20231010-4580432-1

PATIENT

DRUGS (1)
  1. PREDNISONE [Suspect]
     Active Substance: PREDNISONE
     Indication: B-cell type acute leukaemia
     Dosage: UNKNOWN
     Route: 065

REACTIONS (4)
  - Multisystem inflammatory syndrome [Unknown]
  - Catheter site dehiscence [Unknown]
  - Bacteraemia [Unknown]
  - Osteomyelitis [Unknown]
